FAERS Safety Report 4854313-X (Version None)
Quarter: 2005Q4

REPORT INFORMATION
  Report Type: 
  Country: None (occurrence: None)
  Receive Date: 20051215
  Receipt Date: 20050912
  Transmission Date: 20060501
  Serious: Yes (Other)
  Sender: FDA-Public Use
  Company Number: PHBS2005BR13463

PATIENT
  Age: 33 Year
  Sex: Male
  Weight: 59 kg

DRUGS (7)
  1. LEPONEX [Suspect]
     Indication: SCHIZOPHRENIA
     Dosage: 50 MG, TID
     Route: 048
     Dates: start: 20050909, end: 20050912
  2. LEPONEX [Suspect]
     Dosage: 50 MG, BID
     Route: 048
     Dates: start: 20050913
  3. CARBOLITIUM [Concomitant]
     Indication: DEPRESSION
     Dosage: 300 MG/D
     Route: 048
     Dates: start: 20030901
  4. CHLORPROMAZINE [Concomitant]
     Indication: DEPRESSION
     Dosage: 100 MG/D
     Route: 048
     Dates: start: 20030901
  5. LORAX [Concomitant]
     Indication: DEPRESSION
     Dosage: 4 MG, QHS
     Route: 048
     Dates: start: 20050901
  6. HALOPERIDOL [Concomitant]
     Indication: DEPRESSION
     Dosage: 2.5 MG, QHS
     Route: 048
     Dates: start: 20030901
  7. DIAZEPAM [Concomitant]
     Indication: DEPRESSION
     Dosage: 5 MG, QD
     Route: 048
     Dates: start: 20030901

REACTIONS (17)
  - ANOREXIA [None]
  - ASTHENIA [None]
  - CONFUSIONAL STATE [None]
  - DELIRIUM [None]
  - DIZZINESS [None]
  - FALL [None]
  - FATIGUE [None]
  - HEADACHE [None]
  - HYPERSOMNIA [None]
  - MONOPLEGIA [None]
  - MOVEMENT DISORDER [None]
  - NAUSEA [None]
  - SALIVARY HYPERSECRETION [None]
  - SOMNOLENCE [None]
  - SUICIDAL IDEATION [None]
  - URINARY RETENTION [None]
  - VISUAL ACUITY REDUCED [None]
